FAERS Safety Report 6248748-0 (Version None)
Quarter: 2009Q2

REPORT INFORMATION
  Report Type: 
  Country: None (occurrence: None)
  Receive Date: 20090629
  Receipt Date: 20090624
  Transmission Date: 20091009
  Serious: Yes (Death)
  Sender: FDA-Public Use
  Company Number: PHHY2009BR25468

PATIENT
  Sex: Male

DRUGS (6)
  1. DIOVAN [Suspect]
     Indication: BLOOD PRESSURE MANAGEMENT
     Dosage: 80 MG, UNK
     Route: 048
  2. MONOCORDIL [Concomitant]
     Indication: BLOOD PRESSURE
     Dosage: 2 TABLETS (20 MG) DAILY
  3. OXICONTEM [Concomitant]
     Dosage: 4 TABLETS PER DAY
     Route: 048
     Dates: start: 20090101
  4. DIETHYL-STILBESTROL TAB [Concomitant]
  5. DRAMIN [Concomitant]
     Indication: PROPHYLAXIS
     Dosage: 3 TIMES PER DAY
     Route: 048
     Dates: start: 20090101
  6. OMEPRAZOLE [Concomitant]
     Indication: PROPHYLAXIS
     Dosage: 1 TIME DAILY ON FASTING
     Route: 048
     Dates: start: 20090101

REACTIONS (1)
  - RESPIRATORY FAILURE [None]
